FAERS Safety Report 25706805 (Version 3)
Quarter: 2025Q3

REPORT INFORMATION
  Report Type: Spontaneous
  Country: US (occurrence: US)
  Receive Date: 20250820
  Receipt Date: 20250910
  Transmission Date: 20251020
  Serious: Yes (Other)
  Sender: SANOFI AVENTIS
  Company Number: US-SA-2025SA246467

PATIENT
  Age: 83 Year
  Sex: Female
  Weight: 49.8 kg

DRUGS (3)
  1. DUPIXENT [Suspect]
     Active Substance: DUPILUMAB
     Indication: Dermatitis atopic
     Dosage: 300 MG, QOW
     Route: 058
  2. LOSARTAN [Suspect]
     Active Substance: LOSARTAN
     Indication: Blood pressure abnormal
  3. METOPROLOL [Suspect]
     Active Substance: METOPROLOL
     Indication: Blood pressure abnormal
     Dosage: 12.5 MG, QD

REACTIONS (6)
  - Glaucoma [Unknown]
  - Visual impairment [Unknown]
  - Blood pressure abnormal [Unknown]
  - Dry mouth [Unknown]
  - Throat irritation [Unknown]
  - Cough [Unknown]
